FAERS Safety Report 9253792 (Version 2)
Quarter: 2013Q2

REPORT INFORMATION
  Report Type: Spontaneous
  Country: US (occurrence: US)
  Receive Date: 20130425
  Receipt Date: 20130530
  Transmission Date: 20140414
  Serious: No
  Sender: FDA-Public Use
  Company Number: US-PFIZER INC-2013125329

PATIENT
  Age: 59 Year
  Sex: Female
  Weight: 56 kg

DRUGS (1)
  1. GENOTROPIN MQ [Suspect]
     Indication: SUPPLEMENTATION THERAPY
     Dosage: 0.2 MG, 1X/DAY
     Dates: start: 2013

REACTIONS (2)
  - Product quality issue [Unknown]
  - Injection site haemorrhage [Recovered/Resolved]
